FAERS Safety Report 5030317-1 (Version None)
Quarter: 2006Q2

REPORT INFORMATION
  Report Type: 
  Country: None (occurrence: None)
  Receive Date: 20060614
  Receipt Date: 20060601
  Transmission Date: 20061013
  Serious: Yes (Hospitalization, Disabling, Other)
  Sender: FDA-Public Use
  Company Number: 2005S1000109

PATIENT
  Age: 42 Year
  Sex: Female
  Weight: 92.3 kg

DRUGS (20)
  1. CUBICIN [Suspect]
     Indication: STAPHYLOCOCCAL OSTEOMYELITIS
     Dosage: 380 MG; Q24H; IV
     Route: 042
     Dates: start: 20050510, end: 20050602
  2. CYCLOBENZAPRINE HCL [Concomitant]
  3. OXYCODONE HCL [Concomitant]
  4. VANCOMYCIN [Concomitant]
  5. CEFAZOLIN [Concomitant]
  6. RIFAMPIN [Concomitant]
  7. BUMETANIDE [Concomitant]
  8. ALBUTEROL [Concomitant]
  9. PREMARIN [Concomitant]
  10. AZMACORT [Concomitant]
  11. ENALAPRIL [Concomitant]
  12. MONTELUKAST [Concomitant]
  13. BUSPAR [Concomitant]
  14. DIPHENHYDRAMINE HCL [Concomitant]
  15. CIMETIDINE [Concomitant]
  16. PROMETHAZINE [Concomitant]
  17. PREVACID [Concomitant]
  18. ALPRAZOLAM [Concomitant]
  19. MORPHINE [Concomitant]
  20. SENOKOT [Concomitant]

REACTIONS (17)
  - ALANINE AMINOTRANSFERASE INCREASED [None]
  - ASPARTATE AMINOTRANSFERASE INCREASED [None]
  - BLOOD ALKALINE PHOSPHATASE INCREASED [None]
  - BLOOD GLUCOSE INCREASED [None]
  - BLOOD POTASSIUM INCREASED [None]
  - BLOOD PRESSURE DECREASED [None]
  - CREATINE PHOSPHOKINASE DECREASED [None]
  - ERYTHEMA [None]
  - HAEMATOCRIT DECREASED [None]
  - HAEMOGLOBIN DECREASED [None]
  - HEADACHE [None]
  - HERPES ZOSTER [None]
  - NAUSEA [None]
  - OPTIC ATROPHY [None]
  - PAPILLOEDEMA [None]
  - VISION BLURRED [None]
  - VISUAL FIELD DEFECT [None]
